FAERS Safety Report 4712200-1 (Version None)
Quarter: 2005Q3

REPORT INFORMATION
  Report Type: 
  Country: None (occurrence: None)
  Receive Date: 20050712
  Receipt Date: 20050701
  Transmission Date: 20060218
  Serious: Yes (Other)
  Sender: FDA-Public Use
  Company Number: CH-ROCHE-409620

PATIENT
  Age: 69 Year
  Sex: Female

DRUGS (19)
  1. TORSEMIDE [Suspect]
     Indication: DRUG USE FOR UNKNOWN INDICATION
     Route: 065
  2. COAPROVEL [Suspect]
     Indication: DRUG USE FOR UNKNOWN INDICATION
     Route: 065
  3. VENTOLIN [Concomitant]
  4. SERETIDE [Concomitant]
  5. IPRATROPIUM BROMIDE/SALBUTAMOL SULFATE [Concomitant]
     Dosage: REPORTED AS DOSPIR.
  6. SPIRIVA [Concomitant]
  7. UNIPHYL [Concomitant]
     Dosage: UNIFYL.
  8. FLUIMUCIL [Concomitant]
  9. NASONEX [Concomitant]
  10. TAMBOCOR [Concomitant]
  11. DILTIAZEM [Concomitant]
  12. MOTILIUM [Concomitant]
  13. CALCIMAGON-D3 [Concomitant]
  14. FEMOSTON [Concomitant]
     Dosage: FEMOSTON-CONTI.
  15. NEXIUM [Concomitant]
  16. FERRUM HAUSMANN [Concomitant]
  17. DORMICUM [Concomitant]
  18. SINTROM [Concomitant]
  19. AZOPT [Concomitant]

REACTIONS (4)
  - DERMATITIS EXFOLIATIVE [None]
  - DRUG ERUPTION [None]
  - EOSINOPHILIA [None]
  - PHOTOSENSITIVITY REACTION [None]
